FAERS Safety Report 8556804-7 (Version None)
Quarter: 2012Q3

REPORT INFORMATION
  Report Type: 
  Country: None (occurrence: None)
  Receive Date: 20120801
  Receipt Date: 20120725
  Transmission Date: 20120928
  Serious: Yes (Hospitalization, Other)
  Sender: FDA-Public Use
  Company Number: US-009507513-1202USA01357

PATIENT

DRUGS (2)
  1. SYNTHROID [Concomitant]
     Indication: THYROID DISORDER
  2. FOSAMAX [Suspect]
     Indication: OSTEOPOROSIS
     Dosage: 70 MG, UNK
     Route: 048
     Dates: start: 20010101, end: 20110517

REACTIONS (11)
  - FEMUR FRACTURE [None]
  - SKIN CANCER [None]
  - OSTEOARTHRITIS [None]
  - SPINAL DISORDER [None]
  - FALL [None]
  - URINARY TRACT INFECTION [None]
  - VAGINAL HAEMORRHAGE [None]
  - CERVICAL POLYP [None]
  - POSTMENOPAUSAL HAEMORRHAGE [None]
  - HYPERCHOLESTEROLAEMIA [None]
  - FRACTURE NONUNION [None]
